FAERS Safety Report 5233032-4 (Version None)
Quarter: 2007Q1

REPORT INFORMATION
  Report Type: 
  Country: None (occurrence: None)
  Receive Date: 20070207
  Receipt Date: 20061227
  Transmission Date: 20070707
  Serious: Yes (Other)
  Sender: FDA-Public Use
  Company Number: US-PFIZER INC-2007006298

PATIENT
  Sex: Male

DRUGS (3)
  1. BEXTRA [Suspect]
     Indication: ARTHRALGIA
     Dates: start: 20020901, end: 20021029
  2. BEXTRA [Suspect]
     Indication: BACK PAIN
  3. TRIAMCINOLONE [Concomitant]
     Dates: start: 20020901

REACTIONS (1)
  - STEVENS-JOHNSON SYNDROME [None]
